FAERS Safety Report 23261183 (Version 1)
Quarter: 2023Q4

REPORT INFORMATION
  Report Type: Report from Study
  Country: CO (occurrence: CO)
  Receive Date: 20231205
  Receipt Date: 20231205
  Transmission Date: 20240109
  Serious: Yes (Other)
  Sender: FDA-Public Use
  Company Number: CO-UCBSA-2023057347

PATIENT
  Age: 45 Year
  Sex: Female
  Weight: 52 kg

DRUGS (6)
  1. BRIVARACETAM [Suspect]
     Active Substance: BRIVARACETAM
     Indication: Epilepsy
     Dosage: 100 MILLIGRAM, 2X/DAY (BID)
     Route: 048
     Dates: start: 20230705, end: 20231027
  2. BRIVARACETAM [Suspect]
     Active Substance: BRIVARACETAM
     Dosage: 100 MILLIGRAM, 2X/DAY (BID)
     Route: 048
     Dates: start: 20231101
  3. LACOSAMIDE [Concomitant]
     Active Substance: LACOSAMIDE
     Indication: Epilepsy
     Dosage: 100 MILLIGRAM
  4. DIVALPROEX SODIUM [Concomitant]
     Active Substance: DIVALPROEX SODIUM
     Indication: Product used for unknown indication
     Dosage: 500 MILLIGRAM
  5. SERTRALINE HYDROCHLORIDE [Concomitant]
     Active Substance: SERTRALINE HYDROCHLORIDE
     Indication: Product used for unknown indication
     Dosage: 50 MILLIGRAM
  6. RISPERIDONE [Concomitant]
     Active Substance: RISPERIDONE
     Indication: Product used for unknown indication
     Dosage: 12 DROPS

REACTIONS (5)
  - Seizure [Recovered/Resolved]
  - Disorientation [Recovered/Resolved]
  - Therapy interrupted [Unknown]
  - Product availability issue [Unknown]
  - Insurance issue [Unknown]

NARRATIVE: CASE EVENT DATE: 20231027
